FAERS Safety Report 10069128 (Version 1)
Quarter: 2014Q2

REPORT INFORMATION
  Report Type: Spontaneous
  Country: US (occurrence: US)
  Receive Date: 20140409
  Receipt Date: 20140409
  Transmission Date: 20141212
  Serious: No
  Sender: FDA-Public Use
  Company Number: US-009507513-1404USA001708

PATIENT
  Age: 15 Year
  Sex: Female
  Weight: 49.43 kg

DRUGS (9)
  1. NEXPLANON [Suspect]
     Indication: CONTRACEPTION
     Dosage: 1 ROD/3 YEARS
     Route: 059
     Dates: start: 20130812
  2. PROZAC [Concomitant]
  3. HYDROCHLOROTHIAZIDE (+) LISINOPRIL [Concomitant]
  4. QUINIDINE [Concomitant]
  5. IRON (UNSPECIFIED) [Concomitant]
  6. NAPROXEN [Concomitant]
  7. FOCALIN XR [Concomitant]
  8. LEVEMIR [Concomitant]
  9. VESICARE [Concomitant]

REACTIONS (5)
  - Abdominal distension [Not Recovered/Not Resolved]
  - Mood swings [Not Recovered/Not Resolved]
  - Weight increased [Not Recovered/Not Resolved]
  - Breast pain [Not Recovered/Not Resolved]
  - Expired product administered [Unknown]
